FAERS Safety Report 5911615-3 (Version None)
Quarter: 2008Q4

REPORT INFORMATION
  Report Type: 
  Country: None (occurrence: None)
  Receive Date: 20081003
  Receipt Date: 20080918
  Transmission Date: 20090506
  Serious: Yes (Hospitalization)
  Sender: FDA-Public Use
  Company Number: ALK_00669_2008

PATIENT
  Sex: Female
  Weight: 52.1637 kg

DRUGS (5)
  1. VIVITROL [Suspect]
     Indication: ALCOHOLISM
     Dosage: (380 MG 1X/MONTH INTRAMUSCULAR)
     Route: 030
     Dates: start: 20080301, end: 20080602
  2. PREFERA OB [Concomitant]
  3. ZOLOFT [Concomitant]
  4. REMERON [Concomitant]
  5. EMPRESSE [Concomitant]

REACTIONS (3)
  - ABORTION MISSED [None]
  - DRUG EXPOSURE DURING PREGNANCY [None]
  - PREGNANCY [None]
